FAERS Safety Report 11695821 (Version 1)
Quarter: 2015Q4

REPORT INFORMATION
  Report Type: Spontaneous
  Country: US (occurrence: None)
  Receive Date: 20151103
  Receipt Date: 20151103
  Transmission Date: 20160304
  Serious: Yes (Hospitalization, Disabling)
  Sender: FDA-Public Use
  Company Number: None

PATIENT
  Age: 72 Year
  Sex: Male
  Weight: 74.84 kg

DRUGS (9)
  1. LIPITOR [Concomitant]
     Active Substance: ATORVASTATIN CALCIUM
  2. DIGOXEN [Concomitant]
     Active Substance: DIGOXIN
  3. SOTALOL. [Concomitant]
     Active Substance: SOTALOL
  4. ASA [Concomitant]
     Active Substance: ASPIRIN
  5. LEVETIRACETAM. [Concomitant]
     Active Substance: LEVETIRACETAM
  6. TEMAZEPAM. [Concomitant]
     Active Substance: TEMAZEPAM
  7. PANTOPRAZOLE [Concomitant]
     Active Substance: PANTOPRAZOLE SODIUM
  8. PHENYTOIN. [Concomitant]
     Active Substance: PHENYTOIN
  9. SPRYCEL [Suspect]
     Active Substance: DASATINIB
     Indication: CHRONIC MYELOID LEUKAEMIA
     Dosage: ONCE DAILY
     Route: 048

REACTIONS (2)
  - Pleural effusion [None]
  - Subdural haematoma [None]

NARRATIVE: CASE EVENT DATE: 20150916
